FAERS Safety Report 17573388 (Version 1)
Quarter: 2020Q1

REPORT INFORMATION
  Report Type: Other
  Country: EG (occurrence: EG)
  Receive Date: 20200323
  Receipt Date: 20200323
  Transmission Date: 20200409
  Serious: Yes (Hospitalization, Other)
  Sender: FDA-Public Use
  Company Number: EG-VALIDUS PHARMACEUTICALS LLC-EG-2020VAL000217

PATIENT

DRUGS (5)
  1. TAVANIC [Suspect]
     Active Substance: LEVOFLOXACIN
     Indication: ANTIBIOTIC THERAPY
     Dosage: 750 MG, UNK
     Route: 042
     Dates: start: 20200115, end: 202001
  2. LASIX [Suspect]
     Active Substance: FUROSEMIDE
     Indication: DIURETIC THERAPY
  3. LASIX [Suspect]
     Active Substance: FUROSEMIDE
     Indication: HYPERTENSION
     Dosage: 20 MG, UNK
     Route: 042
     Dates: start: 20200113, end: 202001
  4. PARACETAMOL [Suspect]
     Active Substance: ACETAMINOPHEN
     Indication: ANALGESIC THERAPY
     Dosage: 1 UNK
     Route: 065
     Dates: start: 20200113, end: 202001
  5. PHENYTOIN. [Suspect]
     Active Substance: PHENYTOIN
     Indication: EPILEPSY
     Dosage: 100 MG, UNK
     Route: 042
     Dates: start: 20200113, end: 202001

REACTIONS (2)
  - Vomiting [Recovered/Resolved]
  - Blood creatinine increased [Recovered/Resolved]

NARRATIVE: CASE EVENT DATE: 20200116
